FAERS Safety Report 7324273-0 (Version None)
Quarter: 2011Q1

REPORT INFORMATION
  Report Type: 
  Country: None (occurrence: None)
  Receive Date: 20110301
  Receipt Date: 20110222
  Transmission Date: 20110831
  Serious: Yes (Hospitalization, Other)
  Sender: FDA-Public Use
  Company Number: TR-MEDIMMUNE-MEDI-0012541

PATIENT
  Sex: Male
  Weight: 5.5 kg

DRUGS (1)
  1. SYNAGIS [Suspect]
     Route: 030
     Dates: start: 20101213, end: 20110114

REACTIONS (3)
  - RESPIRATORY DISTRESS [None]
  - BRONCHITIS [None]
  - WHEEZING [None]
